FAERS Safety Report 9010927 (Version 1)
Quarter: 2013Q1

REPORT INFORMATION
  Report Type: Spontaneous
  Country: BR (occurrence: BR)
  Receive Date: 20130109
  Receipt Date: 20130109
  Transmission Date: 20140127
  Serious: Yes (Hospitalization, Other)
  Sender: FDA-Public Use
  Company Number: BR-JNJFOC-20130103524

PATIENT
  Age: 78 Year
  Sex: Female
  Weight: 56 kg

DRUGS (4)
  1. REMINYL ER [Suspect]
     Indication: DEMENTIA ALZHEIMER^S TYPE
     Route: 065
  2. REMINYL ER [Suspect]
     Indication: DEMENTIA ALZHEIMER^S TYPE
     Route: 065
  3. REMINYL ER [Suspect]
     Indication: DEMENTIA ALZHEIMER^S TYPE
     Route: 065
     Dates: start: 201209
  4. UNKNOWN MULTIPLE MEDICATIONS [Suspect]
     Indication: PRODUCT USED FOR UNKNOWN INDICATION
     Route: 065

REACTIONS (4)
  - Aspiration bronchial [Recovered/Resolved]
  - Lung infection [Recovered/Resolved]
  - Hypertension [Not Recovered/Not Resolved]
  - Confusional state [Not Recovered/Not Resolved]
